FAERS Safety Report 7585482-9 (Version None)
Quarter: 2011Q2

REPORT INFORMATION
  Report Type: 
  Country: None (occurrence: None)
  Receive Date: 20110624
  Receipt Date: 20110616
  Transmission Date: 20111010
  Serious: Yes (Death)
  Sender: FDA-Public Use
  Company Number: DAV-AE-MTX-11-037

PATIENT
  Age: 85 Year
  Sex: Female

DRUGS (15)
  1. METHOTREXATE [Suspect]
     Indication: RHEUMATOID ARTHRITIS
     Dosage: 2 MG/WK
     Dates: end: 20110302
  2. ABATACEPT [Concomitant]
  3. RANITAC [Concomitant]
  4. CEROCRAL [Concomitant]
  5. MUCODYNE [Concomitant]
  6. EPOGIN [Concomitant]
  7. CEFTRIAXONE [Concomitant]
  8. PREDNISOLINE [Concomitant]
  9. AMLODIPINE [Concomitant]
  10. FERROUS CITRATE [Concomitant]
  11. CANDESARTAN CILEXETIL [Concomitant]
  12. FOSAMAC [Concomitant]
  13. MELOXICAM [Concomitant]
  14. MECOBALAMIN [Concomitant]
  15. FOLIC ACID [Concomitant]

REACTIONS (4)
  - STOMATITIS [None]
  - CARDIAC FAILURE [None]
  - CONDITION AGGRAVATED [None]
  - MYELODYSPLASTIC SYNDROME [None]
